FAERS Safety Report 14387034 (Version 1)
Quarter: 2018Q1

REPORT INFORMATION
  Report Type: Spontaneous
  Country: US (occurrence: US)
  Receive Date: 20180115
  Receipt Date: 20180115
  Transmission Date: 20180509
  Serious: Yes (Other)
  Sender: FDA-Public Use
  Company Number: US-SA-2017SA174198

PATIENT
  Age: 50 Year
  Sex: Female
  Weight: 63.95 kg

DRUGS (6)
  1. PARAPLATIN [Concomitant]
     Active Substance: CARBOPLATIN
  2. TAXOTERE [Suspect]
     Active Substance: DOCETAXEL
     Indication: BREAST CANCER
     Route: 051
     Dates: start: 20091127, end: 20091127
  3. TAXOTERE [Suspect]
     Active Substance: DOCETAXEL
     Indication: BREAST CANCER
     Route: 051
     Dates: start: 20100310, end: 20100310
  4. LOPID [Concomitant]
     Active Substance: GEMFIBROZIL
     Route: 065
     Dates: start: 200808
  5. SINGULAIR [Concomitant]
     Active Substance: MONTELUKAST SODIUM
     Route: 065
     Dates: start: 200808
  6. HERCEPTIN [Concomitant]
     Active Substance: TRASTUZUMAB

REACTIONS (2)
  - Alopecia [Not Recovered/Not Resolved]
  - Psychological trauma [Unknown]

NARRATIVE: CASE EVENT DATE: 20100910
